APPROVED DRUG PRODUCT: PRIMAQUINE
Active Ingredient: PRIMAQUINE PHOSPHATE
Strength: EQ 15MG BASE
Dosage Form/Route: TABLET;ORAL
Application: N008316 | Product #001 | TE Code: AB
Applicant: SANOFI AVENTIS US LLC
Approved: Approved Prior to Jan 1, 1982 | RLD: Yes | RS: Yes | Type: RX